FAERS Safety Report 16106987 (Version 3)
Quarter: 2019Q3

REPORT INFORMATION
  Report Type: Spontaneous
  Country: CN (occurrence: CN)
  Receive Date: 20190322
  Receipt Date: 20190826
  Transmission Date: 20191004
  Serious: Yes (Death, Life-Threatening)
  Sender: FDA-Public Use
  Company Number: CN-CELGENEUS-CHN-20190306633

PATIENT
  Age: 75 Year
  Sex: Female
  Weight: 46 kg

DRUGS (32)
  1. SODIUM BICARBONATE. [Concomitant]
     Active Substance: SODIUM BICARBONATE
     Indication: ORAL INFECTION
     Dosage: 15 MILLIGRAM
     Route: 060
     Dates: start: 20190212, end: 20190317
  2. INTRALIPID [Concomitant]
     Active Substance: EGG PHOSPHOLIPIDS\GLYCERIN\SOYBEAN OIL
     Indication: NUTRITIONAL SUPPLEMENTATION
     Dosage: 250 MILLILITER
     Route: 041
     Dates: start: 20190226, end: 20190313
  3. RECOMBINANT HUMAN THROMBOPOIETIN [Concomitant]
     Active Substance: THROMBOPOIETIN
     Indication: THROMBOCYTOPENIA
     Dosage: 15000 IU (INTERNATIONAL UNIT)
     Route: 058
     Dates: start: 20190307
  4. AZACITIDINE. [Suspect]
     Active Substance: AZACITIDINE
     Indication: ACUTE MYELOID LEUKAEMIA
     Dosage: 75 MILLIGRAM/SQ. METER
     Route: 058
     Dates: start: 20190222, end: 20190228
  5. SODIUM BICARBONATE. [Concomitant]
     Active Substance: SODIUM BICARBONATE
     Indication: PROPHYLAXIS
  6. TIGECYCLINE. [Concomitant]
     Active Substance: TIGECYCLINE
     Indication: PNEUMONIA
     Dosage: 200 MILLIGRAM
     Route: 041
     Dates: start: 20190313, end: 20190316
  7. FUROSEMIDE. [Concomitant]
     Active Substance: FUROSEMIDE
     Indication: CARDIAC FAILURE ACUTE
     Route: 065
  8. CEFEPIME HYDROCHLORIDE. [Concomitant]
     Active Substance: CEFEPIME HYDROCHLORIDE
     Indication: PNEUMONIA
     Dosage: 4 GRAM
     Route: 041
     Dates: start: 20190316, end: 20190317
  9. POTASSIUM CHLORIDE. [Concomitant]
     Active Substance: POTASSIUM CHLORIDE
     Indication: HYPOKALAEMIA
     Dosage: 1.5 GRAM
     Route: 041
     Dates: start: 20190228, end: 20190313
  10. POTASSIUM CHLORIDE. [Concomitant]
     Active Substance: POTASSIUM CHLORIDE
     Dosage: 1.5 GRAM
     Route: 041
     Dates: start: 20190227, end: 20190228
  11. METHYLPREDNISOLONE SODIUM SUCCINATE. [Concomitant]
     Active Substance: METHYLPREDNISOLONE SODIUM SUCCINATE
     Indication: PNEUMONIA
     Dosage: 80 MILLIGRAM
     Route: 040
     Dates: start: 20190314, end: 20190314
  12. SODIUM BICARBONATE. [Concomitant]
     Active Substance: SODIUM BICARBONATE
     Indication: PROPHYLAXIS
     Route: 041
     Dates: start: 20190221, end: 20190225
  13. INDAPAMIDE. [Concomitant]
     Active Substance: INDAPAMIDE
     Indication: HYPERTENSION
     Dosage: 1.5 MILLIGRAM
     Route: 048
     Dates: start: 20190212, end: 20190319
  14. POTASSIUM CHLORIDE. [Concomitant]
     Active Substance: POTASSIUM CHLORIDE
     Dosage: 30 MILLILITER
     Route: 048
     Dates: start: 20190315, end: 20190315
  15. RECOMBINANT HUMAN GRANULOCYTE COLONY STIMULATING FACTOR [Concomitant]
     Indication: LEUKOPENIA
     Dosage: .3 MILLIGRAM
     Route: 041
     Dates: start: 20190306
  16. IMIPENEM AND CILASTATIN [Concomitant]
     Active Substance: CILASTATIN SODIUM\IMIPENEM
     Indication: PNEUMONIA
     Dosage: 4 GRAM
     Route: 041
     Dates: start: 20190309, end: 20190310
  17. VENETOCLAX. [Concomitant]
     Active Substance: VENETOCLAX
     Indication: ACUTE MYELOID LEUKAEMIA
     Route: 065
  18. MICAFUNGIN. [Concomitant]
     Active Substance: MICAFUNGIN SODIUM
     Indication: PNEUMONIA
     Dosage: 200 MILLIGRAM
     Route: 041
     Dates: start: 20190313
  19. CEFOPERAZONE SODIUM  AND SULBACTAM SODIUM [Concomitant]
     Active Substance: CEFOPERAZONE SODIUM\SULBACTAM SODIUM
     Indication: PNEUMONIA
     Dosage: 12 GRAM
     Route: 041
     Dates: start: 20190312, end: 20190316
  20. BENZBROMARONE [Concomitant]
     Active Substance: BENZBROMARONE
     Indication: PROPHYLAXIS
     Dosage: 50 MILLIGRAM
     Route: 048
     Dates: start: 20190221, end: 20190225
  21. LEVOFLOXACIN. [Concomitant]
     Active Substance: LEVOFLOXACIN
     Indication: PNEUMONIA
     Dosage: 100 MILLILITER
     Route: 041
     Dates: start: 20190316
  22. AMBROXOL HYDROCHLORIDE [Concomitant]
     Active Substance: AMBROXOL HYDROCHLORIDE
     Indication: PNEUMONIA
     Dosage: 120 MILLIGRAM
     Route: 040
     Dates: start: 20190311
  23. OMEPRAZOLE SODIUM [Concomitant]
     Active Substance: OMEPRAZOLE SODIUM
     Indication: PROPHYLAXIS
     Dosage: 40 MILLIGRAM
     Route: 041
     Dates: start: 20190318, end: 20190319
  24. FUROSEMIDE. [Concomitant]
     Active Substance: FUROSEMIDE
     Indication: CEREBRAL HAEMORRHAGE
  25. NORMAL SALINE [Concomitant]
     Active Substance: SODIUM CHLORIDE
     Indication: PROPHYLAXIS
     Route: 041
     Dates: start: 20190221, end: 20190225
  26. MEROPENEM. [Concomitant]
     Active Substance: MEROPENEM
     Indication: PNEUMONIA
     Dosage: 2 GRAM
     Route: 041
     Dates: start: 20190318
  27. METHYLPREDNISOLONE SODIUM SUCCINATE. [Concomitant]
     Active Substance: METHYLPREDNISOLONE SODIUM SUCCINATE
     Dosage: 40 MILLIGRAM
     Route: 041
     Dates: start: 20190315, end: 20190315
  28. ZYVOX [Concomitant]
     Active Substance: LINEZOLID
     Indication: PNEUMONIA
     Dosage: 1.2 GRAM
     Route: 041
     Dates: start: 20190309, end: 20190311
  29. COMPOUND AMINO ACID [Concomitant]
     Active Substance: AMINO ACIDS
     Indication: NUTRITIONAL SUPPLEMENTATION
     Dosage: 250 MILLILITER
     Route: 041
     Dates: start: 20190226, end: 20190310
  30. POTASSIUM CHLORIDE. [Concomitant]
     Active Substance: POTASSIUM CHLORIDE
     Dosage: 120 MILLILITER
     Route: 048
     Dates: start: 20190227, end: 20190227
  31. FUROSEMIDE. [Concomitant]
     Active Substance: FUROSEMIDE
     Indication: PROPHYLAXIS
     Dosage: 20 MILLIGRAM
     Route: 041
     Dates: start: 20190221, end: 20190228
  32. COMPOUND SODIUM CHLORIDE [Concomitant]
     Indication: PROPHYLAXIS
     Dosage: 2500 MILLILITER
     Route: 041
     Dates: start: 20190221, end: 20190225

REACTIONS (2)
  - Cerebral haemorrhage [Fatal]
  - Cardiac failure acute [Not Recovered/Not Resolved]

NARRATIVE: CASE EVENT DATE: 20190314
